FAERS Safety Report 8548762-6 (Version None)
Quarter: 2012Q3

REPORT INFORMATION
  Report Type: 
  Country: None (occurrence: None)
  Receive Date: 20120730
  Receipt Date: 20120724
  Transmission Date: 20120928
  Serious: Yes (Hospitalization, Other)
  Sender: FDA-Public Use
  Company Number: PHFR2006GB006883

PATIENT
  Sex: Male

DRUGS (17)
  1. SODIUM CHLORIDE [Concomitant]
     Dosage: 100 ML, UNK
     Route: 042
     Dates: start: 20061023
  2. RAMIPRIL [Concomitant]
  3. ZOMETA [Suspect]
     Dosage: 4 MG, UNK
     Route: 042
     Dates: start: 20061026
  4. SODIUM CHLORIDE [Concomitant]
     Dosage: 250 ML, FLUSH
     Dates: start: 20060620, end: 20060620
  5. ZOMETA [Suspect]
     Dosage: 4 MG, UNK
     Route: 042
     Dates: start: 20060620
  6. SODIUM CHLORIDE [Concomitant]
     Dosage: 100 ML, UNK
     Route: 042
     Dates: start: 20060731
  7. SODIUM CHLORIDE [Concomitant]
     Dosage: 100 ML, UNK
     Route: 042
     Dates: start: 20061204
  8. ASPIRIN [Concomitant]
  9. CO-DYDRAMOL [Concomitant]
  10. ZOMETA [Suspect]
     Dosage: 4 MG, UNK
     Route: 042
     Dates: start: 20061204
  11. ZOMETA [Suspect]
     Dosage: 4 MG, UNK
     Route: 042
  12. SODIUM CHLORIDE [Concomitant]
     Dosage: 250 ML, UNK
     Route: 042
     Dates: start: 20060731
  13. SODIUM CHLORIDE [Concomitant]
     Dosage: 100 ML, UNK
     Route: 042
     Dates: start: 20060620
  14. SODIUM CHLORIDE [Concomitant]
     Dosage: 250 ML, UNK
     Route: 042
     Dates: start: 20061204
  15. BENDROFLUAZIDE [Concomitant]
  16. ZOMETA [Suspect]
     Dosage: 4 MG, UNK
     Route: 042
     Dates: start: 20060731
  17. SODIUM CHLORIDE [Concomitant]
     Dosage: 250 ML, UNK
     Route: 042
     Dates: start: 20061023

REACTIONS (11)
  - METASTASES TO BONE [None]
  - HAEMOGLOBIN ABNORMAL [None]
  - INSOMNIA [None]
  - CONSTIPATION [None]
  - FATIGUE [None]
  - GENERAL PHYSICAL HEALTH DETERIORATION [None]
  - LETHARGY [None]
  - DECREASED APPETITE [None]
  - PAIN [None]
  - NAUSEA [None]
  - BLOOD CREATININE INCREASED [None]
